FAERS Safety Report 25338262 (Version 2)
Quarter: 2025Q2

REPORT INFORMATION
  Report Type: Spontaneous
  Country: US (occurrence: US)
  Receive Date: 20250520
  Receipt Date: 20250602
  Transmission Date: 20250716
  Serious: Yes (Death, Hospitalization)
  Sender: ASTELLAS
  Company Number: US-ASTELLAS-2025-AER-027303

PATIENT
  Age: 65 Year
  Sex: Male

DRUGS (14)
  1. PADCEV [Suspect]
     Active Substance: ENFORTUMAB VEDOTIN-EJFV
     Indication: Bladder cancer
     Route: 050
     Dates: start: 20240417
  2. TAMSULOSIN [Concomitant]
     Active Substance: TAMSULOSIN
     Indication: Product used for unknown indication
     Route: 065
  3. PROCTOCORT [Concomitant]
     Active Substance: HYDROCORTISONE
     Indication: Product used for unknown indication
     Dosage: APPLY TO AFFECTED AREA TWICE A DAY QUANTITY: 28.4 G
     Route: 065
     Dates: start: 20230511
  4. EMLA [Concomitant]
     Active Substance: LIDOCAINE\PRILOCAINE
     Indication: Product used for unknown indication
     Route: 065
     Dates: start: 20230626
  5. PROSCAR [Concomitant]
     Active Substance: FINASTERIDE
     Indication: Product used for unknown indication
     Route: 048
     Dates: start: 20230918
  6. CELEXA [Concomitant]
     Active Substance: CITALOPRAM HYDROBROMIDE
     Indication: Product used for unknown indication
     Dosage: EVERY AFTERNOON
     Route: 048
     Dates: start: 20231211
  7. HYZAAR [Concomitant]
     Active Substance: HYDROCHLOROTHIAZIDE\LOSARTAN POTASSIUM
     Indication: Product used for unknown indication
     Dosage: 50-12.5 MG PER TABLET, TAKE 1 TABLET BY MOUTH ONCE DAILY
     Route: 048
     Dates: start: 20231211
  8. ZOFRAN ODT [Concomitant]
     Active Substance: ONDANSETRON HYDROCHLORIDE
     Indication: Nausea
     Dosage: DISINTEGRATING TABLET; TAKE 1 TABLET BY MOUTH EVERY 8 HOURS AS NEEDED
     Route: 048
     Dates: start: 20231228
  9. ZOFRAN ODT [Concomitant]
     Active Substance: ONDANSETRON HYDROCHLORIDE
     Indication: Vomiting
  10. PHENERGAN [Concomitant]
     Active Substance: PROMETHAZINE HYDROCHLORIDE
     Indication: Nausea
     Dosage: TAKE 10-20 ML BY MOUTH FOUR TIMES A DAY AS NEEDED. USE IF ZOFRAN OR ALOXI NOT WORKING
     Route: 048
     Dates: start: 20231228
  11. PHENERGAN [Concomitant]
     Active Substance: PROMETHAZINE HYDROCHLORIDE
     Indication: Vomiting
  12. ELIQUIS [Concomitant]
     Active Substance: APIXABAN
     Indication: Product used for unknown indication
     Dosage: TAKE 10-20 ML BY MOUTH FOUR TIMES A DAY AS NEEDED. USE IF ZOFRAN OR ALOXI NOT WORKING
     Route: 048
     Dates: start: 20231228
  13. POTASSIUM CHLORIDE [Concomitant]
     Active Substance: POTASSIUM CHLORIDE
     Indication: Product used for unknown indication
     Dosage: 20 MEQ/15 ML SOLUTION
     Route: 048
  14. PEPCID [Concomitant]
     Active Substance: FAMOTIDINE
     Indication: Product used for unknown indication
     Dosage: AT BEDTIME
     Route: 048

REACTIONS (13)
  - Septic shock [Fatal]
  - Multiple organ dysfunction syndrome [Fatal]
  - Respiratory failure [Unknown]
  - Mental status changes [Unknown]
  - Condition aggravated [Unknown]
  - Hypoxia [Unknown]
  - Hyporesponsive to stimuli [Unknown]
  - SJS-TEN overlap [Unknown]
  - Condition aggravated [Unknown]
  - Shock [Unknown]
  - Condition aggravated [Unknown]
  - Diarrhoea [Unknown]
  - Fatigue [Unknown]

NARRATIVE: CASE EVENT DATE: 20240425
